FAERS Safety Report 13238738 (Version 1)
Quarter: 2017Q1

REPORT INFORMATION
  Report Type: Spontaneous
  Country: US (occurrence: US)
  Receive Date: 20170216
  Receipt Date: 20170216
  Transmission Date: 20170428
  Serious: Yes (Other)
  Sender: FDA-Public Use
  Company Number: US-CLINIGEN GROUP PLC/ CLINIGEN HEALTHCARE LTD-E2B_00001572

PATIENT
  Age: 41 Year
  Sex: Female
  Weight: 67 kg

DRUGS (18)
  1. DECADRON [Concomitant]
     Active Substance: DEXAMETHASONE
     Dosage: 10 MG 1 DAY(S)
     Route: 042
     Dates: start: 19970813, end: 19970813
  2. ETHYOL [Suspect]
     Active Substance: AMIFOSTINE
     Indication: ADVERSE DRUG REACTION
     Dosage: 740 MG/M2* 2 CYCLE(S)
     Route: 042
     Dates: start: 19970720, end: 19970813
  3. ADRIAMYCIN [Concomitant]
     Active Substance: DOXORUBICIN HYDROCHLORIDE
     Dosage: 60 MG/M2 1 DAY(S)
     Route: 042
     Dates: start: 19970813, end: 19970813
  4. CIMETIDINE [Concomitant]
     Active Substance: CIMETIDINE
     Dosage: 300 MG 1 DAY(S)
     Route: 042
     Dates: start: 19970813, end: 19970813
  5. ETHYOL [Suspect]
     Active Substance: AMIFOSTINE
     Dosage: 740 MG/M2 2ND CYCLE(S)
     Route: 042
     Dates: start: 19970813, end: 19970813
  6. NORMAL SALINE [Concomitant]
     Active Substance: SODIUM CHLORIDE
     Dosage: 1.5 L 1 DAY(S)
     Route: 065
     Dates: start: 19970813, end: 19970813
  7. ETHYOL [Suspect]
     Active Substance: AMIFOSTINE
     Dosage: 740 MG/M2 2ND CYCLE(S)
     Route: 042
     Dates: start: 19970813, end: 19970813
  8. TAXOL [Concomitant]
     Active Substance: PACLITAXEL
     Dosage: 175 MG/M2 1 DAY(S)
     Route: 065
     Dates: start: 19970813, end: 19970813
  9. ETHYOL [Suspect]
     Active Substance: AMIFOSTINE
     Dosage: 740 MG/M2 1ST CYCLE(S)
     Route: 042
     Dates: start: 19970720, end: 19970720
  10. TAXOL [Concomitant]
     Active Substance: PACLITAXEL
     Dosage: 175 MG/M2 1 DAY(S)
     Route: 065
     Dates: start: 19970720, end: 19970720
  11. ADRIAMYCIN [Concomitant]
     Active Substance: DOXORUBICIN HYDROCHLORIDE
     Dosage: 60 MG/M2 1 DAY(S)
     Route: 042
     Dates: start: 19970720, end: 19970720
  12. ETHYOL [Suspect]
     Active Substance: AMIFOSTINE
     Dosage: 740 MG/M2* 2 CYCLE(S)
     Route: 042
     Dates: start: 19970720, end: 19970813
  13. ETHYOL [Suspect]
     Active Substance: AMIFOSTINE
     Dosage: 740 MG/M2 1ST CYCLE(S)
     Route: 042
     Dates: start: 19970720, end: 19970720
  14. KYTRIL [Concomitant]
     Active Substance: GRANISETRON HYDROCHLORIDE
     Dosage: 1 MG 1 DAY(S)
     Route: 042
     Dates: start: 19970813, end: 19970813
  15. ETHYOL [Suspect]
     Active Substance: AMIFOSTINE
     Dosage: 740 MG/M2* 2 CYCLE(S)
     Route: 042
     Dates: start: 19970720, end: 19970813
  16. ETHYOL [Suspect]
     Active Substance: AMIFOSTINE
     Dosage: 740 MG/M2 1ST CYCLE(S)
     Route: 042
     Dates: start: 19970720, end: 19970720
  17. ETHYOL [Suspect]
     Active Substance: AMIFOSTINE
     Dosage: 740 MG/M2 2ND CYCLE(S)
     Route: 042
     Dates: start: 19970813, end: 19970813
  18. AREDIA [Concomitant]
     Active Substance: PAMIDRONATE DISODIUM
     Dosage: 90 MG 1 DAY(S)
     Route: 042
     Dates: start: 19970813, end: 19970813

REACTIONS (2)
  - Atrial fibrillation [Unknown]
  - Palpitations [Unknown]

NARRATIVE: CASE EVENT DATE: 19970813
